FAERS Safety Report 8899153 (Version 1)
Quarter: 2012Q4

REPORT INFORMATION
  Report Type: 
  Country: US (occurrence: US)
  Receive Date: 20121109
  Receipt Date: 20121109
  Transmission Date: 20130627
  Serious: Yes (Other)
  Sender: FDA-Public Use
  Company Number: CHPA2012US022502

PATIENT
  Age: 49 Year
  Sex: Female

DRUGS (18)
  1. EXCEDRIN TENSION HEADACHE [Suspect]
     Indication: MIGRAINE
     Dosage: 2 tablets at bedtime
     Route: 048
     Dates: end: 201206
  2. IBUPROFEN [Concomitant]
  3. BAYER WOMEN^S ASPIRIN PLUS CALCIUM [Concomitant]
     Dosage: 1 tablet, UNK
     Dates: start: 19820731
  4. VITAMIN B [Concomitant]
     Dosage: 1 tablet daily
     Dates: start: 19820731
  5. VITAMIIN C [Concomitant]
     Dosage: 1 tablet daily
     Dates: start: 19820731
  6. DRUG THERAPY NOS [Concomitant]
     Dosage: 1 tablet, twice daily
     Dates: start: 19820731
  7. ERGOTAMIN CAFFEINE [Concomitant]
     Dosage: 100 mg, twice daily
     Dates: start: 201206
  8. DRUG THERAPY NOS [Concomitant]
     Dosage: 1 DF twice daily
     Dates: start: 201206
  9. ALEVE [Concomitant]
     Dosage: 220 mg, twice daily
     Dates: start: 19820731
  10. BACLOFEN [Concomitant]
     Dosage: 10 mg, twice daily
     Dates: start: 19820731
  11. ARTHROTEC [Concomitant]
     Dosage: 50 mg, 2 tabs in morning and 1 tab in evening
     Dates: start: 19820731
  12. AMITRIPTYLIN [Concomitant]
     Dosage: 50 mg, at bedtime
     Dates: start: 19820731
  13. CYMBALTA [Concomitant]
     Dosage: 60 mg, 1 tablet at night
     Dates: start: 19820731
  14. CYCLOBENZAPRINE [Concomitant]
     Dosage: 10 mg at night
     Dates: start: 19820731
  15. REQUIP [Concomitant]
     Dosage: 0.25 mg at bedtime
     Dates: start: 19820731
  16. CYPROHEPTADINE [Concomitant]
     Dosage: 4 mg at night
     Dates: start: 19820731
  17. CLONAZEPAM [Concomitant]
     Dosage: 0.5 mg at bedtime
     Dates: start: 19820731
  18. DRUG THERAPY NOS [Concomitant]
     Dosage: 3 PILLS AT NIGHT

REACTIONS (2)
  - Hypertonic bladder [Not Recovered/Not Resolved]
  - Incorrect drug administration duration [Unknown]
